FAERS Safety Report 8215951-X (Version None)
Quarter: 2012Q1

REPORT INFORMATION
  Report Type: 
  Country: None (occurrence: None)
  Receive Date: 20120316
  Receipt Date: 20120308
  Transmission Date: 20120608
  Serious: Yes (Hospitalization)
  Sender: FDA-Public Use
  Company Number: GR-COVIDIEN/TYCO HEALTHCARE/MALLINCKRODT-T201102971

PATIENT
  Age: 70 Year
  Sex: Female

DRUGS (1)
  1. OPTIRAY 160 [Suspect]
     Indication: COMPUTERISED TOMOGRAM HEAD
     Dosage: 100-150  ML
     Route: 013
     Dates: start: 20100101, end: 20100101

REACTIONS (3)
  - RASH [None]
  - ERYTHEMA [None]
  - EPIDERMOLYSIS [None]
